FAERS Safety Report 17731674 (Version 1)
Quarter: 2020Q2

REPORT INFORMATION
  Report Type: Spontaneous
  Country: GB (occurrence: GB)
  Receive Date: 20200501
  Receipt Date: 20200501
  Transmission Date: 20200714
  Serious: Yes (Life-Threatening, Hospitalization, Disabling)
  Sender: FDA-Public Use
  Company Number: GB-TEVA-2020-GB-1227870

PATIENT
  Age: 69 Year
  Sex: Male
  Weight: 96 kg

DRUGS (4)
  1. ALLOPURINOL. [Concomitant]
     Active Substance: ALLOPURINOL
  2. NIFEDIPINE. [Suspect]
     Active Substance: NIFEDIPINE
     Dosage: 60 MILLIGRAM, TITRATING UP FROM 20MG/DAY TO 60MG/DAY EVERY TWO WEEKS
     Route: 048
     Dates: end: 20200118
  3. LEVOTHYROXINE. [Concomitant]
     Active Substance: LEVOTHYROXINE
  4. NIFEDIPINE. [Suspect]
     Active Substance: NIFEDIPINE
     Indication: HYPERTENSION
     Dosage: 20 MILLIGRAM, TITRATING UP FROM 20MG/DAY TO 60MG/DAY EVERY TWO WEEKS
     Route: 048
     Dates: start: 20191208

REACTIONS (5)
  - Drug ineffective [Unknown]
  - Deep vein thrombosis [Recovering/Resolving]
  - Oedema peripheral [Recovering/Resolving]
  - Muscle swelling [Recovering/Resolving]
  - Pain [Unknown]
